FAERS Safety Report 11912369 (Version 2)
Quarter: 2016Q1

REPORT INFORMATION
  Report Type: Spontaneous
  Country: DE (occurrence: DE)
  Receive Date: 20160113
  Receipt Date: 20160125
  Transmission Date: 20160526
  Serious: Yes (Death, Hospitalization, Other)
  Sender: FDA-Public Use
  Company Number: DE-GILEAD-2016-0191391

PATIENT

DRUGS (9)
  1. NAC                                /00082801/ [Concomitant]
     Dosage: 600 UNKNOWN, QD
  2. SIMVALIP [Concomitant]
     Dosage: 40 MG, QD
  3. KALINOR                            /00031402/ [Concomitant]
     Active Substance: POTASSIUM CITRATE
  4. EUBIOL                             /00126107/ [Concomitant]
     Dosage: UNK
  5. ZYDELIG [Suspect]
     Active Substance: IDELALISIB
     Indication: PRODUCT USED FOR UNKNOWN INDICATION
     Dosage: 150 MG, BID
     Route: 065
     Dates: start: 20150422, end: 20151204
  6. ASA [Concomitant]
     Active Substance: ASPIRIN
     Dosage: 100 UNKNOWN, QD
  7. TORASEMID [Concomitant]
     Active Substance: TORSEMIDE
  8. AQUAPHOR [Concomitant]
     Active Substance: PETROLATUM
  9. BISOPROLOL [Concomitant]
     Active Substance: BISOPROLOL
     Dosage: 5 MG, UNK

REACTIONS (5)
  - Renal failure [Unknown]
  - Dehydration [Unknown]
  - Pyrexia [Unknown]
  - Diarrhoea [Fatal]
  - Electrolyte imbalance [Unknown]

NARRATIVE: CASE EVENT DATE: 2015
